FAERS Safety Report 17990970 (Version 6)
Quarter: 2020Q4

REPORT INFORMATION
  Report Type: Report from Study
  Country: US (occurrence: US)
  Receive Date: 20200707
  Receipt Date: 20201023
  Transmission Date: 20210113
  Serious: Yes (Other)
  Sender: FDA-Public Use
  Company Number: US-BRISTOL-MYERS SQUIBB COMPANY-BMS-2020-052519

PATIENT
  Age: 54 Year
  Sex: Female
  Weight: 85.4 kg

DRUGS (4)
  1. AGLATIMAGENE BESADENOVEC [Suspect]
     Active Substance: AGLATIMAGENE BESADENOVEC
     Indication: GLIOBLASTOMA MULTIFORME
     Dosage: 1 MILLILITER
     Route: 065
  2. VALACICLOVIR [Suspect]
     Active Substance: VALACYCLOVIR HYDROCHLORIDE
     Indication: GLIOBLASTOMA MULTIFORME
     Dosage: 84 GRAM
  3. NIVOLUMAB [Suspect]
     Active Substance: NIVOLUMAB
     Indication: GLIOBLASTOMA MULTIFORME
     Dosage: 1680 MILLILITER
     Route: 065
  4. STEROIDS [Concomitant]
     Active Substance: UNSPECIFIED INGREDIENT
     Indication: PRODUCT USED FOR UNKNOWN INDICATION
     Route: 065

REACTIONS (4)
  - Oropharyngeal pain [Recovered/Resolved]
  - Pyrexia [Recovered/Resolved]
  - Lymphocyte count decreased [Recovered/Resolved]
  - Rash maculo-papular [Recovered/Resolved]

NARRATIVE: CASE EVENT DATE: 20200629
